FAERS Safety Report 8172250 (Version 5)
Quarter: 2019Q2

REPORT INFORMATION
  Report Type: Report from Study
  Country: DE (occurrence: DE)
  Receive Date: 20111007
  Receipt Date: 20190620
  Transmission Date: 20190711
  Serious: Yes (Other)
  Sender: FDA-Public Use
  Company Number: DE-PFIZER INC-2011229529

PATIENT
  Age: 30 Year
  Sex: Male
  Weight: 60 kg

DRUGS (6)
  1. NOVALGIN [Concomitant]
     Dosage: 1 G, 4X/DAY
     Route: 048
     Dates: start: 20110811
  2. MST [Concomitant]
     Indication: PAIN
     Dosage: 10 MG, 3X/DAY
     Route: 048
     Dates: start: 20110715, end: 20110817
  3. MST [Concomitant]
     Dosage: 90-120 MG, AS NEEDED
     Dates: start: 20110908
  4. NOVALGIN [Concomitant]
     Indication: PAIN
     Dosage: 40 GTT, 5 TIMES A DAY
     Route: 048
     Dates: start: 20110728, end: 20110810
  5. MST [Concomitant]
     Dosage: 10 MG, 4X/DAY
     Route: 048
     Dates: start: 20110818, end: 20110907
  6. CRIZOTINIB [Suspect]
     Active Substance: CRIZOTINIB
     Indication: NON-SMALL CELL LUNG CANCER
     Dosage: 250 MG, 2X/DAY
     Route: 048
     Dates: start: 20110728, end: 20110906

REACTIONS (1)
  - Hepatotoxicity [Recovered/Resolved]

NARRATIVE: CASE EVENT DATE: 20110906
